FAERS Safety Report 8902434 (Version 1)
Quarter: 2012Q4

REPORT INFORMATION
  Report Type: 
  Country: US (occurrence: US)
  Receive Date: 20121112
  Receipt Date: 20121112
  Transmission Date: 20130627
  Serious: No
  Sender: FDA-Public Use
  Company Number: US-009507513-2012SP009665

PATIENT
  Age: 1 Year
  Sex: Male
  Weight: 17.23 kg

DRUGS (6)
  1. CLARITIN KIDS [Suspect]
     Indication: HYPERSENSITIVITY
     Dosage: 5 mg, PRN
     Route: 048
     Dates: start: 20120611, end: 20120612
  2. CLARITIN KIDS [Suspect]
     Indication: MEDICAL OBSERVATION
     Dosage: 15 mg, ONCE
     Route: 048
     Dates: start: 20120207
  3. MUCINEX [Concomitant]
     Indication: HYPERSENSITIVITY
     Dosage: UNK UNK, PRN
  4. VITAMINS (UNSPECIFIED) [Concomitant]
     Indication: PRODUCT USED FOR UNKNOWN INDICATION
     Dosage: UNK, Unknown
  5. BENADRYL [Concomitant]
     Indication: HYPERSENSITIVITY
     Dosage: UNK, Unknown
  6. SUDAFED [Concomitant]
     Indication: HYPERSENSITIVITY

REACTIONS (1)
  - Accidental overdose [Recovered/Resolved]
